FAERS Safety Report 9733392 (Version 2)
Quarter: 2015Q4

REPORT INFORMATION
  Report Type: Spontaneous
  Country: US (occurrence: US)
  Receive Date: 20131205
  Receipt Date: 20151019
  Transmission Date: 20160305
  Serious: Yes (Death)
  Sender: FDA-Public Use
  Company Number: US-ROCHE-1313706

PATIENT
  Sex: Male

DRUGS (6)
  1. COMPAZINE [Concomitant]
     Active Substance: PROCHLORPERAZINE MALEATE
  2. XELODA [Suspect]
     Active Substance: CAPECITABINE
     Indication: PRODUCT USED FOR UNKNOWN INDICATION
     Dosage: LAST MEDICATION WAS FILLED ON 07/OCT/2013 FOR 28 DAY.
     Route: 048
     Dates: start: 20130519
  3. ASPIRIN. [Concomitant]
     Active Substance: ASPIRIN
  4. ZOFRAN [Concomitant]
     Active Substance: ONDANSETRON HYDROCHLORIDE
  5. MINOCYCLINE\MINOCYCLINE HYDROCHLORIDE [Concomitant]
     Active Substance: MINOCYCLINE\MINOCYCLINE HYDROCHLORIDE
  6. MEGACE [Concomitant]
     Active Substance: MEGESTROL ACETATE

REACTIONS (1)
  - Colon cancer [Fatal]
